FAERS Safety Report 17592468 (Version 11)
Quarter: 2021Q2

REPORT INFORMATION
  Report Type: Spontaneous
  Country: BG (occurrence: BG)
  Receive Date: 20200327
  Receipt Date: 20210519
  Transmission Date: 20210716
  Serious: Yes (Hospitalization, Disabling, Other)
  Sender: FDA-Public Use
  Company Number: NVSC2020BG084834

PATIENT
  Age: 74 Year
  Sex: Female

DRUGS (5)
  1. OLMESARTAN MEDOXOMIL. [Suspect]
     Active Substance: OLMESARTAN MEDOXOMIL
     Indication: NEOPLASM
  2. AMLODIPINE BESILATE,VALSARTAN [Suspect]
     Active Substance: AMLODIPINE BESYLATE\VALSARTAN
     Indication: HYPERTENSION
     Dosage: 1 DF, QD, 1 DF EQUAL TO AMLODIPINE 5MG PLUS VALSARTAN 160MG
     Route: 065
     Dates: start: 201810, end: 201910
  3. OLMESARTAN MEDOXOMIL. [Suspect]
     Active Substance: OLMESARTAN MEDOXOMIL
     Indication: HYPERTENSION
     Dosage: 10 MG, Q24H
     Route: 065
     Dates: start: 2015, end: 2017
  4. VALSARTAN. [Suspect]
     Active Substance: VALSARTAN
     Indication: HYPERTENSION
     Dosage: 320 MG, Q24H
     Route: 048
     Dates: start: 201707, end: 201809
  5. AMLODIPINE [Concomitant]
     Active Substance: AMLODIPINE BESYLATE
     Indication: HYPERTENSION
     Dosage: 5 MG, BID
     Route: 065
     Dates: start: 201809

REACTIONS (13)
  - Discomfort [Unknown]
  - Acral lentiginous melanoma [Not Recovered/Not Resolved]
  - Pruritus [Recovering/Resolving]
  - Malignant melanoma stage II [Recovered/Resolved]
  - Malignant melanoma [Recovered/Resolved]
  - Acral lentiginous melanoma stage II [Unknown]
  - Squamous cell carcinoma of skin [Unknown]
  - Pain of skin [Unknown]
  - Condition aggravated [Recovered/Resolved]
  - Squamous cell carcinoma of the vulva [Unknown]
  - Tenderness [Recovering/Resolving]
  - Squamous cell carcinoma [Not Recovered/Not Resolved]
  - Skin cancer [Unknown]

NARRATIVE: CASE EVENT DATE: 2019
